FAERS Safety Report 14920295 (Version 1)
Quarter: 2018Q2

REPORT INFORMATION
  Report Type: Report from Study
  Country: IL (occurrence: IL)
  Receive Date: 20180521
  Receipt Date: 20180521
  Transmission Date: 20180711
  Serious: Yes (Other)
  Sender: FDA-Public Use
  Company Number: PHHY2017IL016402

PATIENT
  Sex: Female
  Weight: 72.5 kg

DRUGS (1)
  1. COSENTYX [Suspect]
     Active Substance: SECUKINUMAB
     Indication: PSORIASIS
     Dosage: 300 MG, QMO
     Route: 058
     Dates: start: 20160622

REACTIONS (5)
  - Arthralgia [Not Recovered/Not Resolved]
  - Pruritus generalised [Not Recovered/Not Resolved]
  - Epicondylitis [Not Recovered/Not Resolved]
  - Alopecia [Not Recovered/Not Resolved]
  - Meniscus injury [Not Recovered/Not Resolved]
